FAERS Safety Report 17980656 (Version 2)
Quarter: 2025Q2

REPORT INFORMATION
  Report Type: Report from Study
  Country: IT (occurrence: IT)
  Receive Date: 20200704
  Receipt Date: 20250621
  Transmission Date: 20250716
  Serious: Yes (Other)
  Sender: AUROBINDO
  Company Number: IT-GLAXOSMITHKLINE-IT2020GSK104162

PATIENT
  Age: 60 Year
  Sex: Female

DRUGS (4)
  1. SUMATRIPTAN [Suspect]
     Active Substance: SUMATRIPTAN
     Indication: Cluster headache
     Route: 065
  2. LITHIUM [Suspect]
     Active Substance: LITHIUM
     Indication: Cluster headache
     Route: 065
  3. TOPIRAMATE [Concomitant]
     Active Substance: TOPIRAMATE
     Indication: Cluster headache
     Route: 065
  4. VERAPAMIL [Concomitant]
     Active Substance: VERAPAMIL HYDROCHLORIDE
     Indication: Cluster headache
     Route: 065

REACTIONS (3)
  - Hepatic necrosis [Unknown]
  - Tremor [Unknown]
  - Adverse event [Unknown]
